FAERS Safety Report 12818296 (Version 1)
Quarter: 2016Q4

REPORT INFORMATION
  Report Type: Spontaneous
  Country: IN (occurrence: IN)
  Receive Date: 20161006
  Receipt Date: 20161006
  Transmission Date: 20170207
  Serious: Yes (Hospitalization)
  Sender: FDA-Public Use
  Company Number: IN-CIPLA LTD.-2016IN19044

PATIENT

DRUGS (2)
  1. BECLOMETHASONE TOPICAL CREAM [Concomitant]
     Indication: RASH
     Dosage: UNK
     Route: 061
  2. OKACET [Suspect]
     Active Substance: CETIRIZINE HYDROCHLORIDE
     Indication: RASH
     Dosage: UNK
     Route: 065

REACTIONS (1)
  - Condition aggravated [Recovering/Resolving]
